FAERS Safety Report 8746920 (Version 2)
Quarter: 2012Q4

REPORT INFORMATION
  Report Type: 
  Country: BR (occurrence: BR)
  Receive Date: 20120827
  Receipt Date: 20120906
  Transmission Date: 20130627
  Serious: No
  Sender: FDA-Public Use
  Company Number: PHHY2012BR056449

PATIENT
  Age: 51 Year
  Sex: Male

DRUGS (2)
  1. GILENYA [Suspect]
     Indication: MULTIPLE SCLEROSIS
     Dosage: 1 DF, per day
     Route: 048
     Dates: start: 20120622
  2. DORFLEX [Concomitant]
     Indication: HEADACHE

REACTIONS (8)
  - Gastrointestinal disorder [Recovered/Resolved]
  - Vertigo [Recovered/Resolved]
  - Head discomfort [Not Recovered/Not Resolved]
  - Flatulence [Recovered/Resolved]
  - Abdominal pain upper [Recovered/Resolved]
  - Dysentery [Recovered/Resolved]
  - Pruritus [Not Recovered/Not Resolved]
  - Headache [Recovered/Resolved]
